FAERS Safety Report 4397227-4 (Version None)
Quarter: 2004Q3

REPORT INFORMATION
  Report Type: 
  Country: None (occurrence: None)
  Receive Date: 20040709
  Receipt Date: 20040629
  Transmission Date: 20050211
  Serious: Yes (Hospitalization)
  Sender: FDA-Public Use
  Company Number: 04P-087-0254739-00

PATIENT
  Age: 34 Year
  Sex: Female

DRUGS (36)
  1. NORVIR [Suspect]
     Indication: HIV INFECTION
     Dosage: 400 MG, 1 IN 1 D, PER ORAL
     Route: 048
     Dates: start: 20000310, end: 20001027
  2. KALETRA [Suspect]
     Indication: HIV INFECTION
     Dosage: 6 CAPSULE, 1 IN 1 D, PER ORAL
     Route: 048
     Dates: start: 20010130
  3. BIAXIN [Suspect]
     Indication: MYCOBACTERIUM AVIUM COMPLEX INFECTION
     Dosage: 800 MG, 1 IN 1 D, PER ORAL
     Route: 048
     Dates: start: 20001028
  4. ABACAVIR SULFATE [Suspect]
     Indication: HIV INFECTION
     Dosage: 600 MG, 1 IN 1 D, PER ORAL
     Route: 048
     Dates: start: 20010130
  5. INDINAVIR [Suspect]
     Indication: HIV INFECTION
     Dosage: SEE IMAGE PER ORAL
     Route: 048
     Dates: start: 20000310, end: 20001027
  6. NELFINAVIR [Suspect]
     Indication: HIV INFECTION
     Dosage: 2500 MG, 1 IN 1 D, PER ORAL
     Route: 048
     Dates: start: 19980910, end: 19981118
  7. NELFINAVIR [Suspect]
     Indication: HIV INFECTION
     Dosage: 2500 MG, 1 IN 1 D, PER ORAL
     Route: 048
     Dates: start: 19990223, end: 19991216
  8. EFAVIRENZ [Suspect]
     Indication: HIV INFECTION
     Dosage: SEE IMAGE
     Route: 048
     Dates: start: 20000310
  9. EFAVIRENZ [Suspect]
     Indication: HIV INFECTION
     Dosage: SEE IMAGE
     Route: 048
     Dates: start: 20010130
  10. GANCICLOVIR [Suspect]
     Dosage: INJECTION
     Dates: start: 20000215, end: 20000306
  11. GANCICLOVIR [Suspect]
     Dosage: INJECTION
     Dates: start: 20000307, end: 20000424
  12. GANCICLOVIR [Suspect]
     Dosage: INJECTION
     Dates: start: 20000425, end: 20000426
  13. BACTRIM [Suspect]
     Indication: PROPHYLAXIS
     Dosage: 1 DOSAGE FORMS, 1 IN 2 D, ORAL
     Route: 048
     Dates: start: 20010113, end: 20020319
  14. ETHAMBUTOL HYDROCHLORIDE [Suspect]
     Indication: MYCOBACTERIUM AVIUM COMPLEX INFECTION
     Dosage: 500 MG, 1 IN 1 D
     Dates: start: 20001028, end: 20011130
  15. ZIDOVUDINE [Concomitant]
  16. LAMIVUDINE [Concomitant]
  17. STAVUDINE [Concomitant]
  18. FOSCARNET SODIUM [Concomitant]
  19. RIFABUTIN [Interacting]
  20. AMIKACIN SULFATE [Concomitant]
  21. AZITHROMYCIN HYDRATE [Concomitant]
  22. SPARFLOXACIN [Concomitant]
  23. ROXITHROMYCIN [Concomitant]
  24. PENTAMIDINE ISETHIONATE [Concomitant]
  25. SODIUM CHLORIDE [Concomitant]
  26. PREDNISOLONE [Concomitant]
  27. HYDROCORTISONE SODIUM PHOSPHATE [Concomitant]
  28. MORPHINE SULFATE [Concomitant]
  29. ATOVAQUONE [Concomitant]
  30. HYDROCORTISONE [Concomitant]
  31. IV FLUID [Concomitant]
  32. HYDROXYZINE EMBONATE [Concomitant]
  33. MORPHINE HYDROCHLORIDE [Concomitant]
  34. GLUCOSE [Concomitant]
  35. CIPROFLOXACIN [Concomitant]
  36. DEXTROSE [Concomitant]

REACTIONS (17)
  - ANOREXIA [None]
  - BLOOD ALKALINE PHOSPHATASE INCREASED [None]
  - BLOOD CHOLESTEROL INCREASED [None]
  - BLOOD ELECTROLYTES ABNORMAL [None]
  - BLOOD TRIGLYCERIDES INCREASED [None]
  - CALCULUS URINARY [None]
  - CREATININE RENAL CLEARANCE DECREASED [None]
  - DEHYDRATION [None]
  - DIZZINESS [None]
  - DRUG INEFFECTIVE [None]
  - GAMMA-GLUTAMYLTRANSFERASE INCREASED [None]
  - HIV WASTING SYNDROME [None]
  - HYPERLIPIDAEMIA [None]
  - MYCOBACTERIUM AVIUM COMPLEX INFECTION [None]
  - NAUSEA [None]
  - PNEUMOCYSTIS CARINII PNEUMONIA [None]
  - VOMITING [None]
